FAERS Safety Report 25733999 (Version 1)
Quarter: 2025Q3

REPORT INFORMATION
  Report Type: Spontaneous
  Country: US (occurrence: US)
  Receive Date: 20250828
  Receipt Date: 20250828
  Transmission Date: 20251020
  Serious: Yes (Other)
  Sender: AMGEN
  Company Number: US-AMGEN-USASP2025167354

PATIENT
  Age: 82 Year
  Sex: Female

DRUGS (8)
  1. REPATHA [Suspect]
     Active Substance: EVOLOCUMAB
     Indication: Cardiac disorder
     Dosage: 140 MILLIGRAM PER MILLILITRE, Q2WK
     Route: 065
     Dates: start: 2024
  2. REPATHA [Suspect]
     Active Substance: EVOLOCUMAB
     Dosage: 140 MILLIGRAM, Q2WK
     Route: 065
  3. PROLIA [Suspect]
     Active Substance: DENOSUMAB
     Indication: Bone disorder
     Dosage: 140 MILLIGRAM, Q2WK
     Route: 065
  4. PROLIA [Suspect]
     Active Substance: DENOSUMAB
     Dosage: 140 MILLIGRAM, Q2WK
     Route: 065
  5. BUDESONIDE [Concomitant]
     Active Substance: BUDESONIDE
     Indication: Dyspnoea
     Dosage: 0.5 MILLIGRAM, QHS
  6. ALBUTEROL SULFATE [Concomitant]
     Active Substance: ALBUTEROL SULFATE
     Indication: Dyspnoea
  7. AMLODIPINE BESYLATE [Concomitant]
     Active Substance: AMLODIPINE BESYLATE
     Indication: Hypertension
  8. METOPROLOL [Concomitant]
     Active Substance: METOPROLOL
     Indication: Cardiac arrest
     Dates: start: 202501

REACTIONS (9)
  - Pulmonary fibrosis [Unknown]
  - Cerebrovascular accident [Unknown]
  - Low density lipoprotein increased [Unknown]
  - Arterial occlusive disease [Unknown]
  - Arterial disorder [Unknown]
  - Blood cholesterol increased [Unknown]
  - Device difficult to use [Unknown]
  - Drug dose omission by device [Unknown]
  - Cough [Unknown]

NARRATIVE: CASE EVENT DATE: 20250703
